FAERS Safety Report 6549074-2 (Version None)
Quarter: 2010Q1

REPORT INFORMATION
  Report Type: 
  Country: None (occurrence: None)
  Receive Date: 20100125
  Receipt Date: 20100122
  Transmission Date: 20100710
  Serious: Yes (Hospitalization)
  Sender: FDA-Public Use
  Company Number: IT-ROCHE-672454

PATIENT
  Sex: Female

DRUGS (5)
  1. XELODA [Suspect]
     Indication: COLON CANCER
     Dosage: FREQUENCY: DAILY
     Route: 048
     Dates: start: 20091023, end: 20091029
  2. OXALIPLATIN [Concomitant]
  3. PANTOPRAZOLE [Concomitant]
  4. CLONAZEPAM [Concomitant]
  5. PREDNISONE [Concomitant]

REACTIONS (4)
  - ABDOMINAL PAIN [None]
  - BLOOD PRESSURE INCREASED [None]
  - HEART RATE INCREASED [None]
  - ILEUS PARALYTIC [None]
